FAERS Safety Report 4296754-8 (Version None)
Quarter: 2004Q1

REPORT INFORMATION
  Report Type: 
  Country: None (occurrence: None)
  Receive Date: 20040126
  Receipt Date: 20030925
  Transmission Date: 20041129
  Serious: No
  Sender: FDA-Public Use
  Company Number: USA030946711

PATIENT
  Age: 13 Year
  Sex: Male
  Weight: 93 kg

DRUGS (3)
  1. STRATTERA [Suspect]
     Indication: ATTENTION DEFICIT/HYPERACTIVITY DISORDER
     Dosage: 25 MG/DAY
     Dates: end: 20030909
  2. SINGULAIR [Concomitant]
  3. DDAVP [Concomitant]

REACTIONS (2)
  - CYANOSIS [None]
  - PULSE ABNORMAL [None]
